FAERS Safety Report 5448275-4 (Version None)
Quarter: 2007Q3

REPORT INFORMATION
  Report Type: 
  Country: None (occurrence: None)
  Receive Date: 20070911
  Receipt Date: 20070903
  Transmission Date: 20080115
  Serious: Yes (Hospitalization)
  Sender: FDA-Public Use
  Company Number: PHBS2007US14522

PATIENT
  Age: 39 Year
  Sex: Male

DRUGS (4)
  1. LITHIUM CARBONATE [Concomitant]
     Indication: BIPOLAR I DISORDER
     Dosage: 1800 MG, QD
  2. BENZODIAZEPINES [Concomitant]
     Dosage: UNK, PRN
  3. OLANZAPINE [Concomitant]
     Dosage: 30 MG, BID
  4. CLOZAPINE [Suspect]
     Indication: BIPOLAR I DISORDER
     Dosage: 300 MG, BID

REACTIONS (10)
  - AGRANULOCYTOSIS [None]
  - BIPOLAR DISORDER [None]
  - HODGKIN'S DISEASE [None]
  - LYMPHADENOPATHY [None]
  - NEUTROPHIL COUNT DECREASED [None]
  - NIGHT SWEATS [None]
  - RASH PRURITIC [None]
  - STEM CELL TRANSPLANT [None]
  - WEIGHT DECREASED [None]
  - WHITE BLOOD CELL COUNT DECREASED [None]
